FAERS Safety Report 14809271 (Version 1)
Quarter: 2018Q2

REPORT INFORMATION
  Report Type: Report from Study
  Country: US (occurrence: US)
  Receive Date: 20180425
  Receipt Date: 20180425
  Transmission Date: 20180711
  Serious: No
  Sender: FDA-Public Use
  Company Number: US-AMGEN-USASL2018028965

PATIENT
  Age: 69 Year
  Sex: Male

DRUGS (1)
  1. REPATHA [Suspect]
     Active Substance: EVOLOCUMAB
     Indication: BLOOD CHOLESTEROL INCREASED
     Dosage: 140 MG, Q2WK
     Route: 065

REACTIONS (9)
  - Ocular hyperaemia [Unknown]
  - Depression [Unknown]
  - Apathy [Unknown]
  - Fatigue [Unknown]
  - Feeling abnormal [Unknown]
  - Balance disorder [Unknown]
  - Headache [Unknown]
  - Rhinorrhoea [Unknown]
  - Hypertension [Unknown]
